FAERS Safety Report 16212410 (Version 1)
Quarter: 2019Q2

REPORT INFORMATION
  Report Type: Spontaneous
  Country: US (occurrence: US)
  Receive Date: 20190418
  Receipt Date: 20190418
  Transmission Date: 20190711
  Serious: Yes (Other)
  Sender: FDA-Public Use
  Company Number: US-CLINIGEN GROUP PLC/ CLINIGEN HEALTHCARE LTD-US-CLGN-19-00275

PATIENT
  Age: 7 Year
  Sex: Male

DRUGS (12)
  1. FOSCARNET SODIUM. [Suspect]
     Active Substance: FOSCARNET SODIUM
     Indication: CYTOMEGALOVIRUS CHORIORETINITIS
     Route: 031
  2. FOSCARNET SODIUM. [Suspect]
     Active Substance: FOSCARNET SODIUM
     Indication: RETINAL DETACHMENT
  3. GANCICLOVIR. [Suspect]
     Active Substance: GANCICLOVIR
     Indication: RETINAL DETACHMENT
  4. GANCICLOVIR. [Suspect]
     Active Substance: GANCICLOVIR
     Indication: CYTOMEGALOVIRUS CHORIORETINITIS
  5. FOSCARNET SODIUM. [Suspect]
     Active Substance: FOSCARNET SODIUM
     Indication: OPTIC NEUROPATHY
  6. VALGANCICLOVIR. [Concomitant]
     Active Substance: VALGANCICLOVIR
     Indication: OPTIC NEUROPATHY
  7. FOSCARNET SODIUM. [Suspect]
     Active Substance: FOSCARNET SODIUM
     Indication: RETINAL DEGENERATION
  8. GANCICLOVIR. [Suspect]
     Active Substance: GANCICLOVIR
     Indication: OPTIC NEUROPATHY
  9. VALGANCICLOVIR. [Concomitant]
     Active Substance: VALGANCICLOVIR
     Indication: CYTOMEGALOVIRUS CHORIORETINITIS
  10. VALGANCICLOVIR. [Concomitant]
     Active Substance: VALGANCICLOVIR
     Indication: RETINAL DETACHMENT
  11. VALGANCICLOVIR. [Concomitant]
     Active Substance: VALGANCICLOVIR
     Indication: RETINAL DEGENERATION
  12. GANCICLOVIR. [Suspect]
     Active Substance: GANCICLOVIR
     Indication: RETINAL DEGENERATION

REACTIONS (2)
  - Bone marrow failure [Unknown]
  - Off label use [Unknown]
